FAERS Safety Report 23108617 (Version 8)
Quarter: 2023Q4

REPORT INFORMATION
  Report Type: Spontaneous
  Country: US (occurrence: US)
  Receive Date: 20231026
  Receipt Date: 20231208
  Transmission Date: 20240110
  Serious: No
  Sender: FDA-Public Use
  Company Number: US-PFIZER INC-202300319170

PATIENT
  Age: 13 Year
  Sex: Male
  Weight: 56.689 kg

DRUGS (1)
  1. GENOTROPIN [Suspect]
     Active Substance: SOMATROPIN
     Indication: Growth hormone deficiency
     Dosage: 2.6 MG (6 DAYS/WEEK)

REACTIONS (2)
  - Device breakage [Unknown]
  - Device leakage [Unknown]
